FAERS Safety Report 8908457 (Version 1)
Quarter: 2012Q4

REPORT INFORMATION
  Report Type: 
  Country: US (occurrence: US)
  Receive Date: 20121114
  Receipt Date: 20121114
  Transmission Date: 20130627
  Serious: No
  Sender: FDA-Public Use
  Company Number: US-PFIZER INC-2012280179

PATIENT
  Age: 64 Year
  Sex: Female
  Weight: 90.25 kg

DRUGS (2)
  1. REVATIO [Suspect]
     Indication: PULMONARY HYPERTENSION
     Dosage: 40 mg, 2x/day
     Dates: start: 2010
  2. IRON [Suspect]
     Indication: ANEMIA
     Dosage: 625 mg, daily

REACTIONS (2)
  - Fatigue [Not Recovered/Not Resolved]
  - Blood iron decreased [Not Recovered/Not Resolved]
